FAERS Safety Report 5527189-5 (Version None)
Quarter: 2007Q4

REPORT INFORMATION
  Report Type: 
  Country: None (occurrence: None)
  Receive Date: 20071121
  Receipt Date: 20071105
  Transmission Date: 20080405
  Serious: Yes (Death, Hospitalization, Other)
  Sender: FDA-Public Use
  Company Number: 2007VX000787

PATIENT
  Age: 53 Year
  Sex: Male
  Weight: 66.2252 kg

DRUGS (22)
  1. INTERFERON ALFACON-1 [Suspect]
     Indication: HEPATITIS C
     Dosage: 15 UG; QD; SC
     Route: 058
     Dates: start: 20070227, end: 20070601
  2. RIBAVIRIN [Suspect]
     Indication: HEPATITIS C
     Dosage: 600 MG; QAM; PO, 400 MG; QPM; PO
     Route: 048
     Dates: start: 20070227, end: 20070601
  3. RIBAVIRIN [Suspect]
     Indication: HEPATITIS C
     Dosage: 600 MG; QAM; PO, 400 MG; QPM; PO
     Route: 048
     Dates: start: 20070227, end: 20070601
  4. SYNTHROID [Concomitant]
  5. OXYCODONE HCL [Concomitant]
  6. AMBIEN [Concomitant]
  7. ZOFRAN [Concomitant]
  8. TUMS [Concomitant]
  9. CELLCEPT [Concomitant]
  10. PROGRAF [Concomitant]
  11. ACETYLSALICYLIC ACID SRT [Concomitant]
  12. CALCIUM [Concomitant]
  13. NEUPOGEN [Concomitant]
  14. BENADRYL [Concomitant]
  15. OMEPRAZOLE [Concomitant]
  16. VITAMIN CAP [Concomitant]
  17. MAGNESIUM OXIDE [Concomitant]
  18. DOCUSATE [Concomitant]
  19. METAMUCIL [Concomitant]
  20. MAALOX [Concomitant]
  21. PROCRIT [Concomitant]
  22. ACETAMINOPHEN [Concomitant]

REACTIONS (43)
  - AGEUSIA [None]
  - ATELECTASIS [None]
  - BLOOD CREATININE DECREASED [None]
  - BLOOD SODIUM DECREASED [None]
  - BREATH SOUNDS ABNORMAL [None]
  - CHOLESTASIS [None]
  - CONSTIPATION [None]
  - CYTOMEGALOVIRUS VIRAEMIA [None]
  - DEEP VEIN THROMBOSIS [None]
  - DISEASE RECURRENCE [None]
  - DYSPNOEA [None]
  - FAILURE TO THRIVE [None]
  - FEELING ABNORMAL [None]
  - FIBROSIS [None]
  - FLUID INTAKE RESTRICTION [None]
  - HAEMOLYTIC ANAEMIA [None]
  - HEPATIC CIRRHOSIS [None]
  - HEPATIC FAILURE [None]
  - HEPATITIS C [None]
  - HEPATITIS CHOLESTATIC [None]
  - HEPATOSPLENOMEGALY [None]
  - HYPONATRAEMIA [None]
  - HYPOTHYROIDISM [None]
  - INCISIONAL HERNIA [None]
  - INFLUENZA [None]
  - INGUINAL HERNIA [None]
  - INJECTION SITE PAIN [None]
  - INSOMNIA [None]
  - INTERNATIONAL NORMALISED RATIO DECREASED [None]
  - INTERVERTEBRAL DISC DEGENERATION [None]
  - IRON OVERLOAD [None]
  - LIVER TRANSPLANT [None]
  - LIVER TRANSPLANT REJECTION [None]
  - LYMPHADENOPATHY [None]
  - MALNUTRITION [None]
  - MUSCLE SPASMS [None]
  - PAIN IN EXTREMITY [None]
  - PLATELET COUNT DECREASED [None]
  - PNEUMONIA [None]
  - POLLAKIURIA [None]
  - PRODUCTIVE COUGH [None]
  - SPONDYLOLISTHESIS [None]
  - WHITE BLOOD CELL COUNT DECREASED [None]
